FAERS Safety Report 10777963 (Version 1)
Quarter: 2015Q1

REPORT INFORMATION
  Report Type: Spontaneous
  Country: US (occurrence: US)
  Receive Date: 20150209
  Receipt Date: 20150209
  Transmission Date: 20150721
  Serious: No
  Sender: FDA-Public Use
  Company Number: US-AMGEN-USASP2014024905

PATIENT
  Age: 60 Year
  Sex: Female

DRUGS (25)
  1. NEULASTA [Suspect]
     Active Substance: PEGFILGRASTIM
     Indication: PRODUCT USED FOR UNKNOWN INDICATION
     Dosage: UNK
     Route: 042
  2. PROCHLORPERAZINE MALEATE. [Concomitant]
     Active Substance: PROCHLORPERAZINE MALEATE
     Dosage: 10 MG 1 IN 6 HR
     Route: 048
  3. DEXAMETHASONE. [Concomitant]
     Active Substance: DEXAMETHASONE
     Dosage: 6 MG, 7 IN 1 D
     Route: 048
  4. ACETAMINOPHEN. [Concomitant]
     Active Substance: ACETAMINOPHEN
     Dosage: 650 MG, UNK
     Route: 048
  5. DOCETAXEL. [Concomitant]
     Active Substance: DOCETAXEL
     Dosage: 139 MG, UNK
     Route: 042
  6. GABAPENTIN. [Concomitant]
     Active Substance: GABAPENTIN
     Dosage: 300 MG, 2 IN 1 D
     Route: 048
  7. ASPIRIN. [Concomitant]
     Active Substance: ASPIRIN
     Dosage: 81 MG, UNK
  8. VICODIN [Concomitant]
     Active Substance: ACETAMINOPHEN\HYDROCODONE BITARTRATE
     Dosage: UNK
     Route: 048
  9. DILAUDID [Concomitant]
     Active Substance: HYDROMORPHONE HYDROCHLORIDE
     Dosage: 25 MG, 1 IN 4 HR
     Route: 048
  10. CALCIUM GLUCONATE. [Concomitant]
     Active Substance: CALCIUM GLUCONATE
     Dosage: 1 G, UNK
     Route: 042
  11. ARIMIDEX [Concomitant]
     Active Substance: ANASTROZOLE
     Dosage: 1 MG, 1 IN 1 D
     Route: 048
  12. KYTRIL [Concomitant]
     Active Substance: GRANISETRON HYDROCHLORIDE
     Dosage: 2 MG, UNK
     Route: 042
  13. TYLENOL [Concomitant]
     Active Substance: ACETAMINOPHEN
     Dosage: 650 MG, UNK
     Route: 048
  14. FISH OIL [Concomitant]
     Active Substance: FISH OIL
     Dosage: 1000 MG, 1 IN 1 D
     Route: 048
  15. EMEND [Concomitant]
     Active Substance: APREPITANT
     Dosage: 150 IN NS 150 ML
     Route: 042
  16. CARBOPLATIN. [Concomitant]
     Active Substance: CARBOPLATIN
     Dosage: 391 MG, UNK
     Route: 042
  17. HEPARIN [Concomitant]
     Active Substance: HEPARIN SODIUM
     Dosage: 100 UNIT/ML
  18. FLAGYL [Concomitant]
     Active Substance: METRONIDAZOLE\METRONIDAZOLE HYDROCHLORIDE
     Dosage: 500 MG, 1 IN 1 D
     Route: 048
  19. HERCEPTIN [Suspect]
     Active Substance: TRASTUZUMAB
     Indication: BREAST CANCER
     Dosage: 160 MG IN NS 250 ML
     Route: 042
  20. ONDANSETRON HCL [Concomitant]
     Active Substance: ONDANSETRON HYDROCHLORIDE
     Dosage: 8 MG, UNK
     Route: 048
  21. TAXOTERE [Concomitant]
     Active Substance: DOCETAXEL
     Dosage: 140 MG, UNK
     Route: 042
  22. HYDROCHLOROTHIAZIDE W/LISINOPRIL [Concomitant]
     Active Substance: HYDROCHLOROTHIAZIDE\LISINOPRIL
     Dosage: 2 IN 1 D
     Route: 048
  23. ATIVAN [Concomitant]
     Active Substance: LORAZEPAM
     Dosage: 0.5 MG, UNK
     Route: 042
  24. BENADRYL [Concomitant]
     Active Substance: DIPHENHYDRAMINE HYDROCHLORIDE
     Dosage: 25 MG, UNK
     Route: 042
  25. MAGNESIUM SULFATE. [Concomitant]
     Active Substance: MAGNESIUM SULFATE
     Dosage: 1 G, UNK
     Route: 042

REACTIONS (24)
  - Chest discomfort [Unknown]
  - Contusion [Unknown]
  - Rash [Unknown]
  - Chills [Unknown]
  - Skin discolouration [Recovered/Resolved]
  - Fatigue [Recovered/Resolved]
  - Abdominal tenderness [Unknown]
  - Hypoaesthesia [Unknown]
  - Skin burning sensation [Unknown]
  - Dysgeusia [Unknown]
  - Pruritus [Unknown]
  - Paraesthesia [Unknown]
  - Nausea [Recovered/Resolved]
  - Abdominal pain upper [Unknown]
  - Pain in extremity [Unknown]
  - Rash erythematous [Unknown]
  - Skin exfoliation [Unknown]
  - Diarrhoea [Unknown]
  - Neuralgia [Unknown]
  - Malaise [Unknown]
  - Limb discomfort [Unknown]
  - Peripheral swelling [Unknown]
  - Dry skin [Unknown]
  - Erythema [Unknown]

NARRATIVE: CASE EVENT DATE: 20120723
